FAERS Safety Report 13914491 (Version 1)
Quarter: 2017Q3

REPORT INFORMATION
  Report Type: Spontaneous
  Country: US (occurrence: None)
  Receive Date: 20170827
  Receipt Date: 20170827
  Transmission Date: 20171127
  Serious: No
  Sender: FDA-Public Use
  Company Number: None

PATIENT
  Age: 76 Year
  Sex: Female

DRUGS (2)
  1. AFINITOR [Suspect]
     Active Substance: EVEROLIMUS
     Indication: METASTASES TO BONE
     Dates: start: 201705, end: 201707
  2. AFINITOR [Suspect]
     Active Substance: EVEROLIMUS
     Indication: BREAST CANCER FEMALE
     Dates: start: 201705, end: 201707

REACTIONS (6)
  - Nail disorder [None]
  - Haemorrhage [None]
  - Mouth swelling [None]
  - Feeding disorder [None]
  - Swelling [None]
  - Fatigue [None]

NARRATIVE: CASE EVENT DATE: 20170501
